FAERS Safety Report 4874094-3 (Version None)
Quarter: 2006Q1

REPORT INFORMATION
  Report Type: 
  Country: None (occurrence: None)
  Receive Date: 20060104
  Receipt Date: 20051220
  Transmission Date: 20060701
  Serious: Yes (Other)
  Sender: FDA-Public Use
  Company Number: 2005172162

PATIENT
  Sex: Female

DRUGS (3)
  1. CADUET [Suspect]
     Indication: HYPERTENSION
     Dosage: 5/10 MG (1 IN 1 D)
     Dates: start: 20040101, end: 20051201
  2. LIPITOR [Suspect]
     Indication: BLOOD CHOLESTEROL INCREASED
     Dosage: 10 MG (10 MG 1 IN 1D )
     Dates: start: 19970101, end: 20040101
  3. NORVASC [Suspect]
     Indication: HYPERTENSION
     Dosage: 5 MG (5 MG 1 IN 1 D)
     Dates: start: 20000101

REACTIONS (3)
  - HEPATIC ENZYME INCREASED [None]
  - HYPERTENSION [None]
  - KNEE ARTHROPLASTY [None]
